FAERS Safety Report 12662780 (Version 2)
Quarter: 2016Q4

REPORT INFORMATION
  Report Type: Spontaneous
  Country: DE (occurrence: DE)
  Receive Date: 20160818
  Receipt Date: 20161018
  Transmission Date: 20170207
  Serious: Yes (Life-Threatening)
  Sender: FDA-Public Use
  Company Number: DE-BIOVITRUM-2016DE0630

PATIENT
  Age: 1 Year
  Sex: Female

DRUGS (2)
  1. KINERET [Suspect]
     Active Substance: ANAKINRA
     Indication: JUVENILE IDIOPATHIC ARTHRITIS
     Dosage: 2-3 MG/KG
     Route: 058
  2. KINERET [Suspect]
     Active Substance: ANAKINRA
     Dosage: 5 MG/KG
     Route: 058

REACTIONS (2)
  - Histiocytosis haematophagic [Unknown]
  - Viral infection [Unknown]
